FAERS Safety Report 21642042 (Version 1)
Quarter: 2022Q4

REPORT INFORMATION
  Report Type: Spontaneous
  Country: US (occurrence: US)
  Receive Date: 20221125
  Receipt Date: 20221125
  Transmission Date: 20230112
  Serious: No
  Sender: FDA-Public Use
  Company Number: US-ORGANON-O2210USA002166

PATIENT
  Age: 33 Year
  Sex: Female

DRUGS (2)
  1. FOLLISTIM AQ [Suspect]
     Active Substance: FOLLITROPIN
     Indication: Infertility female
     Dosage: 900 IU/1.08 ML AT A DOSE OF 300 UNITS UNDER THE SKIN VIA SUBCUTANEOUS ROUTE EVERY DAY
     Route: 058
     Dates: start: 20210717
  2. GANIRELIX [Suspect]
     Active Substance: GANIRELIX
     Indication: Infertility female
     Dosage: 250 MCG/ 0.5 ML AT A DOSE OF 1 SYRINGE UNDER THE SKIN VIA SUBCUTANEOUS ROUTE AS DIRECTED
     Route: 058
     Dates: start: 20210717

REACTIONS (1)
  - Adverse drug reaction [Unknown]

NARRATIVE: CASE EVENT DATE: 20221025
